FAERS Safety Report 9041208 (Version 1)
Quarter: 2013Q1

REPORT INFORMATION
  Report Type: Spontaneous
  Country: US (occurrence: None)
  Receive Date: 20130123
  Receipt Date: 20130123
  Transmission Date: 20140127
  Serious: No
  Sender: FDA-Public Use
  Company Number: None

PATIENT
  Sex: 0

DRUGS (1)
  1. MEFLOQUINE [Suspect]

REACTIONS (19)
  - Brain injury [None]
  - Vestibular disorder [None]
  - Nightmare [None]
  - Panic attack [None]
  - Dizziness [None]
  - Gait disturbance [None]
  - Feeling abnormal [None]
  - Impaired work ability [None]
  - Phobia [None]
  - Self-injurious ideation [None]
  - Violence-related symptom [None]
  - Anxiety [None]
  - Depression [None]
  - Headache [None]
  - Migraine [None]
  - Convulsion [None]
  - Neurotoxicity [None]
  - Memory impairment [None]
  - Insomnia [None]
